FAERS Safety Report 8437116-9 (Version None)
Quarter: 2012Q2

REPORT INFORMATION
  Report Type: 
  Country: None (occurrence: None)
  Receive Date: 20120614
  Receipt Date: 20120504
  Transmission Date: 20120825
  Serious: No
  Sender: FDA-Public Use
  Company Number: US-AMGEN-USASP2012016959

PATIENT
  Age: 63 Year
  Sex: Female
  Weight: 60.907 kg

DRUGS (18)
  1. CHOLECALCIFEROL [Concomitant]
     Dosage: 1000 IU, BID
  2. CLONAZEPAM [Concomitant]
     Dosage: 1 MG, QD
     Route: 048
  3. MULTIVITAMIN                       /00097801/ [Concomitant]
     Dosage: UNK UNK, QD
     Route: 048
  4. KLOR-CON [Concomitant]
     Dosage: UNK UNK, PRN
  5. PROLIA [Suspect]
     Indication: OSTEOPOROSIS POSTMENOPAUSAL
     Dosage: 60 MG, Q6MO
     Route: 058
     Dates: start: 20110124, end: 20120307
  6. COENZYME Q10 [Concomitant]
     Route: 048
  7. CALCIUM [Concomitant]
  8. NIACIN [Concomitant]
     Dosage: 500 MG, QD
     Route: 048
  9. B COMPLEX                          /06817001/ [Concomitant]
  10. MAGNESIUM [Concomitant]
     Route: 048
  11. IBUPROFEN [Concomitant]
     Route: 048
  12. LACTOBACILLUS ACIDOPHILUS [Concomitant]
     Dosage: UNK UNK, QD
  13. METHYLPHENIDATE [Concomitant]
     Dosage: 10 MG, QID
  14. ASPIRIN [Concomitant]
     Dosage: 81 MG, QD
     Route: 048
  15. FISH OIL [Concomitant]
     Dosage: 1200 MG, BID
     Route: 048
  16. QUETIAPINE [Concomitant]
     Dosage: 25 MG, QD
     Route: 048
  17. VITAMIN D [Concomitant]
  18. ACETAMINOPHEN [Concomitant]
     Dosage: UNK UNK, PRN
     Route: 048

REACTIONS (3)
  - HYPERCALCIURIA [None]
  - FATIGUE [None]
  - MUSCLE SPASMS [None]
